FAERS Safety Report 24118601 (Version 1)
Quarter: 2024Q3

REPORT INFORMATION
  Report Type: Spontaneous
  Country: CA (occurrence: CA)
  Receive Date: 20240722
  Receipt Date: 20240722
  Transmission Date: 20241017
  Serious: Yes (Other)
  Sender: PFIZER
  Company Number: CA-PFIZER INC-202400218633

PATIENT
  Age: 11 Year
  Sex: Female

DRUGS (4)
  1. METHOTREXATE SODIUM [Suspect]
     Active Substance: METHOTREXATE SODIUM
     Indication: Colitis ulcerative
     Dosage: 10 MG, 1X/DAY
     Route: 048
  2. ENTYVIO [Suspect]
     Active Substance: VEDOLIZUMAB
     Dosage: 300 MG
     Route: 042
  3. MESALAMINE [Suspect]
     Active Substance: MESALAMINE
  4. REMICADE [Suspect]
     Active Substance: INFLIXIMAB
     Dosage: 400 MG
     Route: 042

REACTIONS (23)
  - Arthralgia [Recovering/Resolving]
  - Blood albumin decreased [Recovering/Resolving]
  - Blood lactate dehydrogenase increased [Recovering/Resolving]
  - C-reactive protein increased [Recovering/Resolving]
  - Chest discomfort [Recovering/Resolving]
  - Condition aggravated [Recovering/Resolving]
  - Decreased appetite [Recovering/Resolving]
  - Dyspnoea [Recovering/Resolving]
  - Faecal calprotectin increased [Recovering/Resolving]
  - Flushing [Recovering/Resolving]
  - Haemoglobin increased [Recovering/Resolving]
  - Incontinence [Recovering/Resolving]
  - Insomnia [Recovering/Resolving]
  - Loss of personal independence in daily activities [Recovering/Resolving]
  - Myalgia [Recovering/Resolving]
  - Nasopharyngitis [Recovering/Resolving]
  - Nausea [Recovering/Resolving]
  - Pain in extremity [Recovering/Resolving]
  - Pruritus [Recovering/Resolving]
  - Red blood cell sedimentation rate abnormal [Recovering/Resolving]
  - Seizure [Recovering/Resolving]
  - Urticaria [Recovering/Resolving]
  - Off label use [Unknown]
